FAERS Safety Report 23092133 (Version 2)
Quarter: 2023Q4

REPORT INFORMATION
  Report Type: Report from Study
  Country: CA (occurrence: CA)
  Receive Date: 20231021
  Receipt Date: 20231101
  Transmission Date: 20240110
  Serious: Yes (Other)
  Sender: FDA-Public Use
  Company Number: CA-ABBVIE-5455127

PATIENT
  Sex: Female

DRUGS (1)
  1. RINVOQ [Suspect]
     Active Substance: UPADACITINIB
     Indication: Rheumatoid arthritis
     Dosage: FORM STRENGTH: 15 MILLIGRAM
     Route: 048
     Dates: start: 20230125, end: 20231007

REACTIONS (6)
  - Tonsillectomy [Recovering/Resolving]
  - Feeling abnormal [Unknown]
  - Dysphagia [Unknown]
  - Vomiting [Unknown]
  - Diarrhoea [Unknown]
  - Drug withdrawal syndrome [Unknown]

NARRATIVE: CASE EVENT DATE: 20230101
